FAERS Safety Report 6105887-2 (Version None)
Quarter: 2009Q2

REPORT INFORMATION
  Report Type: 
  Country: None (occurrence: None)
  Receive Date: 20090227
  Receipt Date: 20081117
  Transmission Date: 20091009
  Serious: Yes (Other)
  Sender: FDA-Public Use
  Company Number: 174581USA

PATIENT
  Age: 77 Year
  Sex: Female
  Weight: 76.2043 kg

DRUGS (5)
  1. AMLODIPINE BESYLATE AND BENAZEPRIL HYDROCHLORIDE [Suspect]
     Indication: HYPERTENSION
     Dosage: 5/20MG, ORAL
     Route: 048
     Dates: start: 20070601, end: 20080315
  2. METOPROLOL TARTRATE [Suspect]
     Indication: HYPERTENSION
     Dosage: (100 MG) (20 MG)
     Dates: start: 20070601, end: 20080315
  3. LEVOTHYROXINE SODIUM [Concomitant]
  4. AMLODIPINE [Concomitant]
  5. DYAZIDE [Concomitant]

REACTIONS (3)
  - DERMATITIS [None]
  - URTICARIA [None]
  - XEROSIS [None]
